FAERS Safety Report 13589363 (Version 3)
Quarter: 2017Q3

REPORT INFORMATION
  Report Type: Report from Study
  Country: US (occurrence: US)
  Receive Date: 20170529
  Receipt Date: 20170706
  Transmission Date: 20171127
  Serious: Yes (Other)
  Sender: FDA-Public Use
  Company Number: US-AMGEN-USASL2017080904

PATIENT
  Age: 62 Year
  Sex: Male

DRUGS (1)
  1. ENBREL [Suspect]
     Active Substance: ETANERCEPT
     Indication: RHEUMATOID ARTHRITIS
     Dosage: 50 MG, QWK
     Route: 058
     Dates: start: 201702

REACTIONS (7)
  - Headache [Unknown]
  - Hot flush [Unknown]
  - Abdominal pain upper [Unknown]
  - Asthenia [Unknown]
  - Tremor [Unknown]
  - Flushing [Unknown]
  - Cellulitis [Unknown]

NARRATIVE: CASE EVENT DATE: 201705
